FAERS Safety Report 4957131-7 (Version None)
Quarter: 2006Q1

REPORT INFORMATION
  Report Type: 
  Country: None (occurrence: None)
  Receive Date: 20060329
  Receipt Date: 20050929
  Transmission Date: 20060701
  Serious: Yes (Hospitalization)
  Sender: FDA-Public Use
  Company Number: US-MERCK-0510USA00341

PATIENT
  Age: 50 Year
  Sex: Male
  Weight: 127 kg

DRUGS (2)
  1. VIOXX [Suspect]
     Indication: MUSCLE SPASMS
     Route: 048
     Dates: start: 20011019, end: 20040220
  2. VIOXX [Suspect]
     Route: 048
     Dates: start: 20011019, end: 20040220

REACTIONS (21)
  - ACUTE MYOCARDIAL INFARCTION [None]
  - AMNESIA [None]
  - ANAPHYLACTIC REACTION [None]
  - BACK PAIN [None]
  - BRONCHOSPASM [None]
  - COLONIC POLYP [None]
  - CORONARY ARTERY DISEASE [None]
  - DEPRESSION [None]
  - DIVERTICULUM INTESTINAL [None]
  - FALL [None]
  - HAEMORRHOIDS [None]
  - HIGH DENSITY LIPOPROTEIN DECREASED [None]
  - HYPERCHOLESTEROLAEMIA [None]
  - HYPERHIDROSIS [None]
  - HYPERLIPIDAEMIA [None]
  - HYPERTENSION [None]
  - INTERVERTEBRAL DISC PROTRUSION [None]
  - PAIN IN EXTREMITY [None]
  - PROCTALGIA [None]
  - SCIATICA [None]
  - SENILE ANKYLOSING VERTEBRAL HYPEROSTOSIS [None]
